FAERS Safety Report 4301339-0 (Version None)
Quarter: 2004Q1

REPORT INFORMATION
  Report Type: 
  Country: None (occurrence: None)
  Receive Date: 20040223
  Receipt Date: 20030313
  Transmission Date: 20041129
  Serious: Yes (Hospitalization)
  Sender: FDA-Public Use
  Company Number: US-GLAXOSMITHKLINE-A0400363A

PATIENT
  Age: 72 Year
  Sex: Male

DRUGS (1)
  1. NAVELBINE [Suspect]
     Dates: start: 20030301

REACTIONS (1)
  - RESPIRATORY DISTRESS [None]
